FAERS Safety Report 17424209 (Version 1)
Quarter: 2020Q1

REPORT INFORMATION
  Report Type: Spontaneous
  Country: CZ (occurrence: CZ)
  Receive Date: 20200217
  Receipt Date: 20200217
  Transmission Date: 20200409
  Serious: Yes (Hospitalization, Other)
  Sender: FDA-Public Use
  Company Number: CZ-TEVA-2020-CZ-1186303

PATIENT
  Age: 73 Year
  Sex: Male

DRUGS (11)
  1. LACTULOSE. [Concomitant]
     Active Substance: LACTULOSE
  2. FOLINIC ACID [Suspect]
     Active Substance: LEUCOVORIN
     Indication: PANCREATIC CARCINOMA
     Route: 042
  3. SIMVASTATIN. [Concomitant]
     Active Substance: SIMVASTATIN
  4. OMEPRAZOLE. [Concomitant]
     Active Substance: OMEPRAZOLE
  5. ALLOPURINOL. [Concomitant]
     Active Substance: ALLOPURINOL
  6. INDAPAMID [Concomitant]
     Active Substance: INDAPAMIDE
  7. ENOXAPARIN [Concomitant]
     Active Substance: ENOXAPARIN
  8. FLUOROURACIL. [Suspect]
     Active Substance: FLUOROURACIL
     Route: 065
  9. ITOPRID [Concomitant]
  10. FENTANYL. [Concomitant]
     Active Substance: FENTANYL
  11. SIMETHICONE (DIMETHICONE) [Concomitant]
     Active Substance: DIMETHICONE

REACTIONS (5)
  - C-reactive protein increased [Unknown]
  - Gastrointestinal disorder [Unknown]
  - Leukocytosis [Unknown]
  - Peritonitis [Unknown]
  - Hiccups [Recovered/Resolved]
